FAERS Safety Report 11495302 (Version 6)
Quarter: 2016Q1

REPORT INFORMATION
  Report Type: Report from Study
  Country: CA (occurrence: CA)
  Receive Date: 20150911
  Receipt Date: 20160211
  Transmission Date: 20160525
  Serious: Yes (Other)
  Sender: FDA-Public Use
  Company Number: CA-BAYER-2015-414288

PATIENT
  Age: 58 Year
  Sex: Male

DRUGS (14)
  1. STIVARGA [Suspect]
     Active Substance: REGORAFENIB
     Indication: COLORECTAL CANCER METASTATIC
     Dosage: 80 MG, QD
     Route: 048
     Dates: start: 201510, end: 2015
  2. AMOXIL [Concomitant]
     Active Substance: AMOXICILLIN
  3. ROSUVASTATIN [Concomitant]
     Active Substance: ROSUVASTATIN
  4. OMEPRAZOLE. [Concomitant]
     Active Substance: OMEPRAZOLE
  5. CIPROFLOXACINO [Concomitant]
  6. M-ESLON [Concomitant]
     Active Substance: MORPHINE SULFATE
  7. STATEX [Concomitant]
     Active Substance: MORPHINE SULFATE
  8. SENOKOT [Concomitant]
     Active Substance: SENNOSIDES
  9. FRAGMIN [Concomitant]
     Active Substance: DALTEPARIN SODIUM
  10. STIVARGA [Suspect]
     Active Substance: REGORAFENIB
     Indication: COLORECTAL CANCER METASTATIC
     Dosage: 160 MG, QD
     Route: 048
     Dates: start: 20150828, end: 20150903
  11. STIVARGA [Suspect]
     Active Substance: REGORAFENIB
     Indication: COLORECTAL CANCER METASTATIC
     Dosage: 80 MG, QD (OD)
     Route: 048
     Dates: start: 2015
  12. STIVARGA [Suspect]
     Active Substance: REGORAFENIB
     Indication: COLORECTAL CANCER METASTATIC
     Dosage: 40 MG,DAILY
     Route: 048
  13. ARAVA [Concomitant]
     Active Substance: LEFLUNOMIDE
  14. PREGABALIN. [Concomitant]
     Active Substance: PREGABALIN

REACTIONS (11)
  - Diarrhoea [Recovering/Resolving]
  - Anxiety [Unknown]
  - Blood urine present [Recovering/Resolving]
  - Rash vesicular [Recovered/Resolved]
  - Claustrophobia [Unknown]
  - Blister [Recovered/Resolved]
  - Skin exfoliation [Recovered/Resolved]
  - Palmar-plantar erythrodysaesthesia syndrome [Recovering/Resolving]
  - Dehydration [Recovering/Resolving]
  - Muscle spasms [Not Recovered/Not Resolved]
  - Dry skin [Recovered/Resolved]

NARRATIVE: CASE EVENT DATE: 2015
